FAERS Safety Report 8607314-X (Version None)
Quarter: 2012Q3

REPORT INFORMATION
  Report Type: 
  Country: None (occurrence: None)
  Receive Date: 20120807
  Receipt Date: 20120723
  Transmission Date: 20120928
  Serious: Yes (Other)
  Sender: FDA-Public Use
  Company Number: TPA2012A03672

PATIENT
  Age: 70 Year
  Sex: Male

DRUGS (21)
  1. ROCEPHIN [Suspect]
     Indication: SEPSIS
     Dates: start: 20120501, end: 20120530
  2. BAYCARON (MEFRUSIDE) [Concomitant]
  3. CINAL (ASCORBIC ACID, ALCIUM PANTOTHENATE) [Concomitant]
  4. WARFARIN SODIUM [Concomitant]
  5. SOLITA-T NO.1 (ELECTROLYTES NOS) [Concomitant]
  6. VERAPAMIL HYDROCHLORIDE [Concomitant]
  7. ENALAPRIL MALEATE [Concomitant]
  8. RED CELLS CONCENTRATES-LEUKOCYTES REDUCED (RED BLOOD CELLS, CONCENTRAT [Concomitant]
  9. HEPARIN SODIUM [Concomitant]
  10. CARDIAC FAILURE [Concomitant]
  11. GASCON (DIMETICONE) [Concomitant]
  12. ALLOPURINOL [Concomitant]
  13. LASIX [Concomitant]
  14. ADONA (PARACETAMOL, IBUPROFEN) [Concomitant]
  15. FEBURIC (FEBUXOSTAT) [Suspect]
     Indication: HYPERURICAEMIA
     Dosage: 10 MG (10 MG,1 IN 1 D) PER ORAL ; 20 MG (20 MG,1 IN 1 D),PER ORAL
     Route: 048
     Dates: start: 20120530, end: 20120530
  16. FEBURIC (FEBUXOSTAT) [Suspect]
     Indication: HYPERURICAEMIA
     Dosage: 10 MG (10 MG,1 IN 1 D) PER ORAL ; 20 MG (20 MG,1 IN 1 D),PER ORAL
     Route: 048
     Dates: start: 20120522, end: 20120529
  17. VANCOMYCIN [Suspect]
     Indication: SEPSIS
     Dosage: 500 MG ; 500 MG (500 MG,1 IN 1 D)
     Dates: start: 20120502
  18. VANCOMYCIN [Suspect]
     Indication: SEPSIS
     Dosage: 500 MG ; 500 MG (500 MG,1 IN 1 D)
     Dates: start: 20120523, end: 20120524
  19. ALDACTONE [Concomitant]
  20. PANTOSIN (PANTETHINE) [Concomitant]
  21. ALINAMIN-F (FURSULTIAMINE HYDROCHLORIDE) [Concomitant]

REACTIONS (12)
  - RASH ERYTHEMATOUS [None]
  - SEPTIC SHOCK [None]
  - NEPHROGENIC ANAEMIA [None]
  - RENAL FAILURE CHRONIC [None]
  - THROMBOCYTOPENIA [None]
  - EOSINOPHILIA [None]
  - BONE MARROW FAILURE [None]
  - CONDITION AGGRAVATED [None]
  - CONTINUOUS HAEMODIAFILTRATION [None]
  - HAEMORRHAGIC ANAEMIA [None]
  - DRUG ERUPTION [None]
  - HYPERTHERMIA [None]
